FAERS Safety Report 8184931-5 (Version None)
Quarter: 2012Q1

REPORT INFORMATION
  Report Type: 
  Country: None (occurrence: None)
  Receive Date: 20120305
  Receipt Date: 20120224
  Transmission Date: 20120608
  Serious: Yes (Other)
  Sender: FDA-Public Use
  Company Number: US-VIIV HEALTHCARE LIMITED-A0968283A

PATIENT
  Sex: Male
  Weight: 4.5 kg

DRUGS (3)
  1. ISENTRESS [Suspect]
     Indication: ANTIRETROVIRAL THERAPY
     Dosage: 800MGD PER DAY
     Route: 048
     Dates: start: 20110921
  2. COMBIVIR [Suspect]
     Indication: ANTIRETROVIRAL THERAPY
     Dosage: 2TAB PER DAY
     Route: 048
     Dates: start: 20110921
  3. RETROVIR [Suspect]
     Indication: ANTIRETROVIRAL THERAPY
     Dosage: 2000MGD PER DAY
     Route: 042
     Dates: start: 20111125, end: 20111126

REACTIONS (5)
  - MONOPLEGIA [None]
  - RESPIRATORY DEPRESSION [None]
  - FOETAL EXPOSURE DURING PREGNANCY [None]
  - BIRTH TRAUMA [None]
  - LARGE FOR DATES BABY [None]
